FAERS Safety Report 10474703 (Version 2)
Quarter: 2014Q3

REPORT INFORMATION
  Report Type: Spontaneous
  Country: US (occurrence: US)
  Receive Date: 20140925
  Receipt Date: 20140925
  Transmission Date: 20150326
  Serious: Yes (Other)
  Sender: FDA-Public Use
  Company Number: US-UCBSA-2014007677

PATIENT
  Sex: Female
  Weight: 94 kg

DRUGS (6)
  1. CAFFEINE. [Concomitant]
     Active Substance: CAFFEINE
     Indication: FLUID RETENTION
     Dosage: UNK
     Route: 048
  2. CALCIUM + VITAMIN D [Concomitant]
     Active Substance: CALCIUM\VITAMIN D
     Indication: OSTEOPENIA
  3. VIMPAT [Suspect]
     Active Substance: LACOSAMIDE
     Indication: CONVULSION
     Dosage: 50 MG, ONCE DAILY (QD) AT NIGHT
     Route: 048
     Dates: start: 201408
  4. KEPPRA [Suspect]
     Active Substance: LEVETIRACETAM
     Indication: CONVULSION
     Dosage: 1000 MG, 2X/DAY (BID)
     Route: 048
  5. CALCIUM + VITAMIN D [Concomitant]
     Active Substance: CALCIUM\VITAMIN D
     Indication: OSTEOPOROSIS
     Dosage: 1 TAB
     Route: 048
  6. POTASSIUM [Concomitant]
     Active Substance: POTASSIUM
     Indication: MINERAL SUPPLEMENTATION
     Dosage: UNK
     Route: 048

REACTIONS (3)
  - Convulsion [Recovering/Resolving]
  - Inappropriate schedule of drug administration [Unknown]
  - Somnolence [Not Recovered/Not Resolved]

NARRATIVE: CASE EVENT DATE: 2014
